FAERS Safety Report 6269544-4 (Version None)
Quarter: 2009Q3

REPORT INFORMATION
  Report Type: 
  Country: None (occurrence: None)
  Receive Date: 20090714
  Receipt Date: 20090630
  Transmission Date: 20100115
  Serious: Yes (Hospitalization)
  Sender: FDA-Public Use
  Company Number: 005479

PATIENT
  Age: 78 Year
  Sex: Male

DRUGS (5)
  1. PLETAL [Suspect]
     Indication: ARTERIOSCLEROSIS OBLITERANS
     Dosage: 100 MG, BID, ORAL
     Route: 048
     Dates: start: 20080528
  2. CONIEL (BENIDIPINE HYDROCHLORIDE) TABLET [Concomitant]
  3. DORNER (BERAPROST SODIUM) TABLET [Concomitant]
  4. ANTIHYPERTENSIVES [Concomitant]
  5. SPIRIVA [Concomitant]

REACTIONS (1)
  - ARTERIOSCLEROSIS OBLITERANS [None]
